FAERS Safety Report 10393372 (Version 2)
Quarter: 2014Q3

REPORT INFORMATION
  Report Type: Spontaneous
  Country: JP (occurrence: JP)
  Receive Date: 20140819
  Receipt Date: 20140915
  Transmission Date: 20150326
  Serious: Yes (Life-Threatening, Other)
  Sender: FDA-Public Use
  Company Number: JP-009507513-1408JPN009228

PATIENT
  Age: 81 Year
  Sex: Male
  Weight: 84 kg

DRUGS (9)
  1. TAKEPRON [Concomitant]
     Active Substance: LANSOPRAZOLE
     Dosage: DAILY DOSE UNKNOWN
     Route: 048
     Dates: start: 20140722
  2. UNASYN S [Concomitant]
     Dosage: DAILY DOSE UNKNOWN
     Route: 042
     Dates: start: 20140721, end: 20140724
  3. DAI-KENCHU-TO [Concomitant]
     Active Substance: MALTOSE
     Dosage: DAILY DOSAGE UNKNOWN,POR
     Route: 048
     Dates: start: 20140723
  4. MIDAZOLAM [Suspect]
     Active Substance: MIDAZOLAM\MIDAZOLAM HYDROCHLORIDE
     Indication: SEDATIVE THERAPY
     Dosage: 10 MG, 1 DAY
     Route: 042
     Dates: start: 20140729, end: 20140729
  5. ESLAX [Suspect]
     Active Substance: ROCURONIUM BROMIDE
     Indication: NEUROMUSCULAR BLOCKING THERAPY
     Dosage: 50 MG, 1 DAY
     Route: 042
     Dates: start: 20140729, end: 20140729
  6. CIPROFLOXACIN. [Concomitant]
     Active Substance: CIPROFLOXACIN
     Dosage: DAILY DOSE UNKNOWN
     Route: 042
     Dates: start: 20140721, end: 20140724
  7. FENTANYL. [Concomitant]
     Active Substance: FENTANYL
     Indication: ANALGESIC THERAPY
     Dosage: DAILY DOSAGE UNKNOWN, 0.6 MCG/KG/H CONTINUOS INFUSION
     Route: 041
     Dates: start: 20140721, end: 20140729
  8. PRECEDEX [Concomitant]
     Active Substance: DEXMEDETOMIDINE HYDROCHLORIDE
     Dosage: DAILY DOSE UNKNOWN
     Route: 041
     Dates: start: 20140721, end: 20140729
  9. HERBAL NOS [Concomitant]
     Active Substance: HERBALS
     Dosage: POR, DAILY DOSAGE UNKNOWN
     Route: 048
     Dates: start: 20140723

REACTIONS (2)
  - Blood pressure decreased [Recovered/Resolved]
  - Cardiac arrest [Recovered/Resolved]

NARRATIVE: CASE EVENT DATE: 20140729
